FAERS Safety Report 8626791 (Version 2)
Quarter: 2012Q4

REPORT INFORMATION
  Report Type: 
  Country: US (occurrence: US)
  Receive Date: 20120620
  Receipt Date: 20121109
  Transmission Date: 20130627
  Serious: Yes (Other)
  Sender: FDA-Public Use
  Company Number: US-US-EMD SERONO, INC.-7139912

PATIENT
  Age: 54 Year
  Sex: Female
  Weight: 77 kg

DRUGS (7)
  1. REBIF [Suspect]
     Indication: MULTIPLE SCLEROSIS
     Route: 058
     Dates: start: 20070517
  2. REBIF [Suspect]
     Route: 058
  3. MULTIVITAMINS [Concomitant]
     Indication: PRODUCT USED FOR UNKNOWN INDICATION
  4. SINGULAIR [Concomitant]
     Indication: MULTIPLE ALLERGIES
  5. ALLEGRA [Concomitant]
     Indication: MULTIPLE ALLERGIES
  6. EFFEXOR [Concomitant]
     Indication: DEPRESSION
  7. DETROL [Concomitant]
     Indication: HYPERTONIC BLADDER

REACTIONS (2)
  - Breast cancer stage I [Recovered/Resolved]
  - Headache [Not Recovered/Not Resolved]
